FAERS Safety Report 4330480-1 (Version None)
Quarter: 2004Q1

REPORT INFORMATION
  Report Type: 
  Country: None (occurrence: None)
  Receive Date: 20040330
  Receipt Date: 20040315
  Transmission Date: 20041129
  Serious: Yes (Hospitalization)
  Sender: FDA-Public Use
  Company Number: 200403570

PATIENT
  Age: 70 Year
  Sex: Male

DRUGS (2)
  1. IMODIUM [Suspect]
     Dosage: 20 MG/DAY, PO
     Route: 048
  2. ACTAPULGITE (ATTABULGUITE) [Suspect]
     Dosage: 6 G/DAY,PO
     Route: 048

REACTIONS (3)
  - DEHYDRATION [None]
  - DISORIENTATION [None]
  - GASTROINTESTINAL OBSTRUCTION [None]
